APPROVED DRUG PRODUCT: DESONIDE
Active Ingredient: DESONIDE
Strength: 0.05%
Dosage Form/Route: CREAM;TOPICAL
Application: N017010 | Product #001
Applicant: PADAGIS US LLC
Approved: Approved Prior to Jan 1, 1982 | RLD: Yes | RS: No | Type: DISCN